FAERS Safety Report 7552201-1 (Version None)
Quarter: 2011Q2

REPORT INFORMATION
  Report Type: 
  Country: None (occurrence: None)
  Receive Date: 20110616
  Receipt Date: 20110606
  Transmission Date: 20111010
  Serious: Yes (Life-Threatening, Hospitalization)
  Sender: FDA-Public Use
  Company Number: JP-MERCK-1104USA03903

PATIENT
  Age: 82 Year
  Sex: Male
  Weight: 67 kg

DRUGS (24)
  1. JANUVIA [Suspect]
     Indication: DIABETES MELLITUS
     Route: 048
     Dates: start: 20110225, end: 20110329
  2. NELBIS [Concomitant]
     Route: 048
     Dates: start: 20110412
  3. ALLOPURINOL [Concomitant]
     Indication: HYPERURICAEMIA
     Route: 048
     Dates: start: 20060428, end: 20110329
  4. AMARYL [Concomitant]
     Dosage: DAILY DOSAGE UNKNOWN
     Route: 048
     Dates: start: 20100127, end: 20110224
  5. MICARDIS [Concomitant]
     Route: 048
     Dates: start: 20110412
  6. GLYBURIDE [Concomitant]
     Indication: DIABETES MELLITUS
     Route: 048
     Dates: start: 20060526, end: 20100126
  7. ACTOS [Concomitant]
     Indication: DIABETES MELLITUS
     Dosage: DAILY DOSAGE UNKNOWN
     Route: 048
     Dates: start: 20061027, end: 20110329
  8. MICARDIS [Concomitant]
     Route: 048
     Dates: start: 20060428, end: 20110125
  9. LIPITOR [Concomitant]
     Route: 048
     Dates: start: 20110412
  10. HUMALOG [Concomitant]
     Indication: DIABETES MELLITUS
     Dosage: DAILY DOSAGE UNKNOWN
     Route: 058
  11. AMARYL [Concomitant]
     Route: 065
     Dates: start: 20110412
  12. JANUVIA [Suspect]
     Route: 048
     Dates: start: 20110412
  13. ACTOS [Concomitant]
     Dosage: DAILY DOSAGE UNKNOWN
     Route: 048
     Dates: start: 20110412
  14. NELBIS [Concomitant]
     Indication: DIABETES MELLITUS
     Route: 048
     Dates: start: 20061027, end: 20110329
  15. MICARDIS [Concomitant]
     Indication: HYPERTENSION
     Route: 048
     Dates: start: 20110126, end: 20110329
  16. CONIEL [Concomitant]
     Route: 048
     Dates: start: 20110412
  17. LIPITOR [Concomitant]
     Indication: DYSLIPIDAEMIA
     Route: 048
     Dates: start: 20060428, end: 20110329
  18. CLARITIN [Concomitant]
     Indication: URTICARIA CHRONIC
     Dosage: TABLETS
     Route: 048
     Dates: start: 20060326, end: 20110329
  19. LANSOPRAZOLE [Concomitant]
     Dosage: DIVIDED DOSE FREQUENCY UNKNOWN
     Route: 048
     Dates: start: 20110412
  20. CONIEL [Concomitant]
     Indication: HYPERTENSION
     Route: 048
     Dates: start: 20070314, end: 20110329
  21. ALLOPURINOL [Concomitant]
     Route: 048
     Dates: start: 20110412
  22. CLARITIN [Concomitant]
     Dosage: TABLETS
     Route: 048
     Dates: start: 20110412
  23. AMARYL [Concomitant]
     Indication: DIABETES MELLITUS
     Dosage: DAILY DOSAGE UNKNOWN
     Route: 048
     Dates: start: 20110225, end: 20110329
  24. LANTUS [Concomitant]
     Indication: DIABETES MELLITUS
     Dosage: DAILY DOSAGE UNKNOWN
     Route: 058

REACTIONS (4)
  - DUODENAL ULCER PERFORATION [None]
  - GASTRIC CANCER [None]
  - ILEUS [None]
  - PERITONITIS [None]
